FAERS Safety Report 7756248-1 (Version None)
Quarter: 2011Q3

REPORT INFORMATION
  Report Type: 
  Country: None (occurrence: None)
  Receive Date: 20110916
  Receipt Date: 20110909
  Transmission Date: 20111222
  Serious: Yes (Hospitalization)
  Sender: FDA-Public Use
  Company Number: US-B.I. PHARMACEUTICALS,INC./RIDGEFIELD-2011-BP-21888BP

PATIENT
  Sex: Female

DRUGS (4)
  1. METOPROLOL TARTRATE [Concomitant]
     Indication: HYPERTENSION
  2. PRADAXA [Suspect]
     Indication: ATRIAL FIBRILLATION
     Route: 048
     Dates: end: 20110801
  3. PRADAXA [Suspect]
     Route: 048
     Dates: start: 20110908
  4. PAXIL [Concomitant]
     Indication: DEPRESSION

REACTIONS (1)
  - CEREBROVASCULAR ACCIDENT [None]
